FAERS Safety Report 6597820-4 (Version None)
Quarter: 2010Q1

REPORT INFORMATION
  Report Type: 
  Country: None (occurrence: None)
  Receive Date: 20100216
  Receipt Date: 20100204
  Transmission Date: 20100710
  Serious: Yes (Death, Hospitalization)
  Sender: FDA-Public Use
  Company Number: 94977

PATIENT
  Age: 31 Year
  Sex: Male

DRUGS (1)
  1. KETAMINE HCL [Suspect]
     Indication: ARTHRALGIA
     Dosage: 130MG FOUR TIMES DAY, 200MG FIVES TIMES A D

REACTIONS (8)
  - BLADDER DISORDER [None]
  - BLADDER PAIN [None]
  - BONE MARROW FAILURE [None]
  - CYSTITIS [None]
  - HAEMATURIA [None]
  - POLLAKIURIA [None]
  - SCAR [None]
  - SUPRAPUBIC PAIN [None]
